FAERS Safety Report 23231116 (Version 2)
Quarter: 2024Q3

REPORT INFORMATION
  Report Type: Spontaneous
  Country: CA (occurrence: CA)
  Receive Date: 20231127
  Receipt Date: 20240816
  Transmission Date: 20241017
  Serious: Yes (Life-Threatening, Hospitalization, Other)
  Sender: RANBAXY
  Company Number: CA-SUN PHARMACEUTICAL INDUSTRIES LTD-2023R1-420272

PATIENT
  Age: 52 Year
  Sex: Female

DRUGS (3)
  1. LITHIUM [Suspect]
     Active Substance: LITHIUM
     Indication: Product used for unknown indication
     Dosage: 900 MILLIGRAM, AT NIGHT
     Route: 065
  2. LAMOTRIGINE [Concomitant]
     Active Substance: LAMOTRIGINE
     Indication: Product used for unknown indication
     Dosage: 125 MILLIGRAM, BID
     Route: 065
  3. FLUPHENAZINE [Concomitant]
     Active Substance: FLUPHENAZINE
     Indication: Product used for unknown indication
     Dosage: 5 MILLIGRAM, BID
     Route: 065

REACTIONS (4)
  - Toxic encephalopathy [Unknown]
  - Toxicity to various agents [Unknown]
  - Ataxia [Recovering/Resolving]
  - Dysarthria [Recovering/Resolving]
